FAERS Safety Report 17538521 (Version 1)
Quarter: 2020Q1

REPORT INFORMATION
  Report Type: Spontaneous
  Country: US (occurrence: US)
  Receive Date: 20200305
  Receipt Date: 20200305
  Transmission Date: 20200409
  Serious: No
  Sender: FDA-Public Use
  Company Number: None

PATIENT
  Age: 51 Year
  Sex: Female

DRUGS (1)
  1. AFINITOR [Suspect]
     Active Substance: EVEROLIMUS
     Indication: PANCREATIC CARCINOMA
     Dosage: FROM 09/06/2020 TO CURRENT
     Route: 048

REACTIONS (2)
  - Pruritus [None]
  - Blood triglycerides increased [None]

NARRATIVE: CASE EVENT DATE: 20200206
